FAERS Safety Report 9779286 (Version 1)
Quarter: 2013Q4

REPORT INFORMATION
  Report Type: Spontaneous
  Country: US (occurrence: US)
  Receive Date: 20131223
  Receipt Date: 20131223
  Transmission Date: 20140711
  Serious: No
  Sender: FDA-Public Use
  Company Number: US-009507513-1312USA007589

PATIENT
  Age: 82 Year
  Sex: Female

DRUGS (2)
  1. JANUVIA [Suspect]
     Indication: TYPE 2 DIABETES MELLITUS
     Dosage: 50 MG, QD
     Route: 048
     Dates: start: 201112
  2. SYNTHROID [Concomitant]

REACTIONS (2)
  - Lichen planus [Not Recovered/Not Resolved]
  - Abdominal pain lower [Not Recovered/Not Resolved]
